FAERS Safety Report 4294793-4 (Version None)
Quarter: 2004Q1

REPORT INFORMATION
  Report Type: 
  Country: None (occurrence: None)
  Receive Date: 20040216
  Receipt Date: 20021029
  Transmission Date: 20041129
  Serious: No
  Sender: FDA-Public Use
  Company Number: US-GLAXOSMITHKLINE-A0384976A

PATIENT
  Age: 34 Year
  Sex: Female

DRUGS (2)
  1. LAMICTAL [Suspect]
     Indication: EPILEPSY
     Dosage: 100MG PER DAY
     Route: 048
     Dates: start: 20020930
  2. NEURONTIN [Concomitant]
     Dosage: 1200MG PER DAY

REACTIONS (3)
  - NECK PAIN [None]
  - NEURALGIA [None]
  - PRURITUS [None]
